FAERS Safety Report 8132302-X (Version None)
Quarter: 2012Q1

REPORT INFORMATION
  Report Type: 
  Country: None (occurrence: None)
  Receive Date: 20120213
  Receipt Date: 20120131
  Transmission Date: 20120608
  Serious: Yes (Other)
  Sender: FDA-Public Use
  Company Number: US-ALLERGAN-1201410US

PATIENT
  Age: 60 Year
  Sex: Female

DRUGS (4)
  1. BOTOX COSMETIC [Suspect]
     Dosage: UNK
     Dates: start: 20110930, end: 20110930
  2. BOTOX COSMETIC [Suspect]
     Dosage: UNK
     Dates: start: 20110822, end: 20110822
  3. BOTOX COSMETIC [Suspect]
     Dosage: UNK
     Dates: start: 20110512, end: 20110512
  4. BOTOX COSMETIC [Suspect]
     Indication: SKIN WRINKLING
     Dosage: 24 UNITS, SINGLE
     Route: 030
     Dates: start: 20120109, end: 20120109

REACTIONS (5)
  - COUGH [None]
  - DIZZINESS [None]
  - THROAT TIGHTNESS [None]
  - STRESS [None]
  - ANAPHYLACTIC REACTION [None]
